FAERS Safety Report 9683635 (Version 1)
Quarter: 2013Q4

REPORT INFORMATION
  Report Type: Spontaneous
  Country: US (occurrence: None)
  Receive Date: 20131111
  Receipt Date: 20131111
  Transmission Date: 20140711
  Serious: No
  Sender: FDA-Public Use
  Company Number: None

PATIENT
  Sex: Male

DRUGS (1)
  1. INCIVEK 375 MG [Suspect]
     Indication: HEPATITIS C
     Route: 048
     Dates: start: 20131015

REACTIONS (1)
  - Rash [None]
